FAERS Safety Report 7901993-8 (Version None)
Quarter: 2011Q4

REPORT INFORMATION
  Report Type: 
  Country: None (occurrence: None)
  Receive Date: 20111108
  Receipt Date: 20111026
  Transmission Date: 20120403
  Serious: Yes (Hospitalization, Congenital Anomaly)
  Sender: FDA-Public Use
  Company Number: US-GLAXOSMITHKLINE-A0918315A

PATIENT
  Sex: Female
  Weight: 0.9 kg

DRUGS (7)
  1. CHROMAGEN [Concomitant]
     Dates: start: 20010101
  2. TERBUTALINE [Concomitant]
     Dates: start: 20010101
  3. PAXIL CR [Suspect]
     Indication: PRODUCT USED FOR UNKNOWN INDICATION
     Route: 064
  4. CLARITIN [Concomitant]
     Dates: start: 20010101
  5. AZITHROMYCIN [Concomitant]
     Dates: start: 20010101
  6. PAXIL [Suspect]
     Indication: PRODUCT USED FOR UNKNOWN INDICATION
     Route: 064
  7. LASIX [Concomitant]
     Dates: start: 20010101

REACTIONS (6)
  - PREMATURE BABY [None]
  - PATENT DUCTUS ARTERIOSUS [None]
  - FOETAL EXPOSURE DURING PREGNANCY [None]
  - ATRIAL SEPTAL DEFECT [None]
  - SEPSIS [None]
  - RESPIRATORY DISTRESS [None]
